FAERS Safety Report 7023647-5 (Version None)
Quarter: 2010Q3

REPORT INFORMATION
  Report Type: 
  Country: None (occurrence: None)
  Receive Date: 20100929
  Receipt Date: 20100929
  Transmission Date: 20110219
  Serious: Yes (Other)
  Sender: FDA-Public Use
  Company Number: None

PATIENT
  Age: 40 Year
  Sex: Male
  Weight: 79.4 kg

DRUGS (1)
  1. EPOGEN [Suspect]
     Indication: ANAEMIA
     Dosage: 10,600 UNITS ONCE A WEEK SQ
     Route: 058
     Dates: start: 20100801, end: 20100920

REACTIONS (3)
  - CONTUSION [None]
  - INJECTION SITE PAIN [None]
  - PRODUCT QUALITY ISSUE [None]
